FAERS Safety Report 4815658-2 (Version None)
Quarter: 2005Q4

REPORT INFORMATION
  Report Type: 
  Country: None (occurrence: None)
  Receive Date: 20051027
  Receipt Date: 20051017
  Transmission Date: 20060501
  Serious: Yes (Hospitalization)
  Sender: FDA-Public Use
  Company Number: 2005143685

PATIENT
  Age: 90 Year
  Sex: Male

DRUGS (10)
  1. LIPITOR [Suspect]
     Indication: ILL-DEFINED DISORDER
     Dosage: 1DF (1 IN 1 D), ORAL
     Route: 048
     Dates: start: 20040101, end: 20050819
  2. ALLOPURINOL [Suspect]
     Indication: ILL-DEFINED DISORDER
     Dosage: 200 MG (1 D), ORAL
     Route: 048
     Dates: start: 20040101, end: 20050819
  3. COVERSYL (PERINDOPRIL) [Suspect]
     Indication: ILL-DEFINED DISORDER
     Dosage: 2DF ( 2 IN 1 D), ORAL
     Route: 048
     Dates: start: 20050101, end: 20050822
  4. PLAVIX [Suspect]
     Indication: ILL-DEFINED DISORDER
     Dosage: 1DF (1 IN 1 D), ORAL
     Route: 048
     Dates: start: 20050101, end: 20050822
  5. DILTIAZEM HYDROCHLORIDE [Suspect]
     Indication: ILL-DEFINED DISORDER
     Dosage: (300 MG), ORAL
     Route: 048
     Dates: start: 20040101
  6. TADENAN (PYGEUM AFRICANUM) [Suspect]
     Indication: ILL-DEFINED DISORDER
     Dosage: 1DF (1 IN 1 D), ORAL
     Route: 048
     Dates: start: 20040101
  7. SERMION (NICERGOLINE) [Concomitant]
  8. VASTAREL (TRIMETHAZIDINE HYDROCHLORIDE) [Concomitant]
  9. DAFLON (DIOSMIN) [Concomitant]
  10. ACETAMINOPHEN W/ PROPOXYPHENE HCL [Concomitant]

REACTIONS (3)
  - AGRANULOCYTOSIS [None]
  - NEUTROPENIA [None]
  - PYREXIA [None]
